FAERS Safety Report 12051172 (Version 1)
Quarter: 2016Q1

REPORT INFORMATION
  Report Type: Report from Study
  Country: FR (occurrence: FR)
  Receive Date: 20160209
  Receipt Date: 20160209
  Transmission Date: 20160526
  Serious: Yes (Death, Hospitalization, Other)
  Sender: FDA-Public Use
  Company Number: PHHY2016FR012439

PATIENT
  Age: 76 Year
  Sex: Male
  Weight: 70 kg

DRUGS (1)
  1. ULTIBRO BREEZHALER [Suspect]
     Active Substance: GLYCOPYRRONIUM\INDACATEROL
     Indication: CHRONIC OBSTRUCTIVE PULMONARY DISEASE
     Dosage: UNK
     Route: 065
     Dates: start: 20150727

REACTIONS (2)
  - Infection [Unknown]
  - Acute respiratory failure [Fatal]

NARRATIVE: CASE EVENT DATE: 201511
